FAERS Safety Report 21534107 (Version 1)
Quarter: 2022Q4

REPORT INFORMATION
  Report Type: Spontaneous
  Country: US (occurrence: US)
  Receive Date: 20221101
  Receipt Date: 20221101
  Transmission Date: 20230112
  Serious: No
  Sender: FDA-Public Use
  Company Number: US-PARATEK PHARMACEUTICALS, INC.-2022PTK00225

PATIENT
  Age: 75 Year
  Sex: Female
  Weight: 108.84 kg

DRUGS (12)
  1. NUZYRA [Suspect]
     Active Substance: OMADACYCLINE
     Indication: Cellulitis
     Dosage: 450 MG, 1X/DAY
     Route: 048
     Dates: start: 20220709, end: 20220710
  2. NUZYRA [Suspect]
     Active Substance: OMADACYCLINE
     Indication: Skin ulcer
     Dosage: 150 MG, 2X/DAY AT 4AM AND 4PM
     Route: 048
     Dates: start: 20220711, end: 20220718
  3. WARFARIN [Concomitant]
     Active Substance: WARFARIN
     Dosage: 0.5 TABLETS, EVERY 48 HOURS
     Dates: end: 20220708
  4. WARFARIN [Concomitant]
     Active Substance: WARFARIN
     Dosage: 1 TABLETS, EVERY 48 HOURS
     Dates: end: 20220708
  5. WARFARIN [Concomitant]
     Active Substance: WARFARIN
     Dosage: 0.5 TABLETS, 1X/DAY
     Dates: start: 20220709
  6. BUPROPION [Concomitant]
     Active Substance: BUPROPION
  7. ALLOPURINOL [Concomitant]
     Active Substance: ALLOPURINOL
  8. POTASSIUM CHLORIDE [Concomitant]
     Active Substance: POTASSIUM CHLORIDE
  9. LEVOTHYROXINE [Concomitant]
     Active Substance: LEVOTHYROXINE
     Dosage: FOR HER THYROID
  10. LISINOPRIL [Concomitant]
     Active Substance: LISINOPRIL
  11. SIMVASTATIN [Concomitant]
     Active Substance: SIMVASTATIN
  12. TRIAMCINOLONE [Concomitant]
     Active Substance: TRIAMCINOLONE
     Dosage: ON HER ECZEMA
     Route: 061

REACTIONS (5)
  - Gastrooesophageal reflux disease [Unknown]
  - Somnolence [Recovering/Resolving]
  - Constipation [Recovered/Resolved]
  - Nausea [Recovered/Resolved]
  - Vulvovaginal mycotic infection [Not Recovered/Not Resolved]

NARRATIVE: CASE EVENT DATE: 20220701
